FAERS Safety Report 12325967 (Version 1)
Quarter: 2016Q2

REPORT INFORMATION
  Report Type: Spontaneous
  Country: CA (occurrence: CA)
  Receive Date: 20160503
  Receipt Date: 20160503
  Transmission Date: 20160815
  Serious: Yes (Death, Other)
  Sender: FDA-Public Use
  Company Number: CA-CIPLA LTD.-2016CA04375

PATIENT

DRUGS (4)
  1. IRINOTECAN [Suspect]
     Active Substance: IRINOTECAN
     Indication: COLORECTAL CANCER
     Dosage: UNK
     Route: 065
  2. OXALIPLATIN. [Suspect]
     Active Substance: OXALIPLATIN
     Indication: COLORECTAL CANCER
     Dosage: UNK
     Route: 065
  3. IRINOTECAN [Suspect]
     Active Substance: IRINOTECAN
     Dosage: 250 MG/M2, EVERY THREE WEEKS
     Route: 065
  4. OLAPARIB [Suspect]
     Active Substance: OLAPARIB
     Indication: COLORECTAL CANCER
     Dosage: 50 MG, BID, EVERY THREE WEEKS
     Route: 048

REACTIONS (6)
  - Colitis [Fatal]
  - Sepsis [Fatal]
  - Drug interaction [Unknown]
  - Diarrhoea [Unknown]
  - Febrile neutropenia [Unknown]
  - Thrombocytopenia [Unknown]
